FAERS Safety Report 15657975 (Version 1)
Quarter: 2018Q4

REPORT INFORMATION
  Report Type: Report from Study
  Country: PK (occurrence: PK)
  Receive Date: 20181126
  Receipt Date: 20181126
  Transmission Date: 20190205
  Serious: Yes (Hospitalization, Disabling)
  Sender: FDA-Public Use
  Company Number: PK-SA-2018SA299477

PATIENT
  Age: 72 Year
  Sex: Female

DRUGS (4)
  1. TREVIAMET [Concomitant]
  2. INSULIN GLARGINE [Suspect]
     Active Substance: INSULIN GLARGINE
     Indication: DIABETES MELLITUS
     Dosage: 20 IU, HS
     Route: 058
     Dates: start: 20151114
  3. LIPIGET [Concomitant]
  4. VALTEC [VALSARTAN] [Concomitant]

REACTIONS (2)
  - Bedridden [Unknown]
  - Femur fracture [Recovering/Resolving]

NARRATIVE: CASE EVENT DATE: 20180618
